FAERS Safety Report 14093860 (Version 1)
Quarter: 2017Q4

REPORT INFORMATION
  Report Type: Spontaneous
  Country: GB (occurrence: GB)
  Receive Date: 20171016
  Receipt Date: 20171016
  Transmission Date: 20180321
  Serious: Yes (Life-Threatening, Other)
  Sender: FDA-Public Use
  Company Number: GB-PFIZER INC-2017444482

PATIENT
  Age: 62 Year
  Sex: Male
  Weight: 81 kg

DRUGS (4)
  1. FOLIC ACID. [Concomitant]
     Active Substance: FOLIC ACID
     Dosage: UNK
  2. HUMIRA [Suspect]
     Active Substance: ADALIMUMAB
     Indication: CROHN^S DISEASE
     Dosage: 40 MG, EVERY 2 WEEKS
     Route: 058
     Dates: start: 20170310, end: 20170619
  3. OMEPRAZOLE. [Concomitant]
     Active Substance: OMEPRAZOLE
     Dosage: UNK
  4. METHOTREXATE SODIUM. [Suspect]
     Active Substance: METHOTREXATE SODIUM
     Indication: CROHN^S DISEASE
     Dosage: 15 MG, WEEKLY
     Route: 048
     Dates: start: 20170313, end: 20170619

REACTIONS (1)
  - Acute lymphocytic leukaemia [Unknown]

NARRATIVE: CASE EVENT DATE: 20170619
